FAERS Safety Report 9206173 (Version 1)
Quarter: 2013Q2

REPORT INFORMATION
  Report Type: Spontaneous
  Country: US (occurrence: None)
  Receive Date: 20130401
  Receipt Date: 20130401
  Transmission Date: 20140414
  Serious: No
  Sender: FDA-Public Use
  Company Number: None

PATIENT
  Age: 63 Year
  Sex: Female
  Weight: 71.22 kg

DRUGS (4)
  1. ATORVASTATIN [Suspect]
     Indication: BLOOD CHOLESTEROL INCREASED
     Dates: start: 20121001, end: 20130401
  2. SYNTHROID [Concomitant]
  3. ESTROGEN [Concomitant]
  4. PROGESTERONE [Concomitant]

REACTIONS (2)
  - Abnormal dreams [None]
  - Bradyphrenia [None]
